FAERS Safety Report 6453805-X (Version None)
Quarter: 2009Q4

REPORT INFORMATION
  Report Type: 
  Country: None (occurrence: None)
  Receive Date: 20091123
  Receipt Date: 20091123
  Transmission Date: 20100525
  Serious: Yes (Disabling)
  Sender: FDA-Public Use
  Company Number: None

PATIENT
  Age: 53 Year
  Sex: Male
  Weight: 124.7392 kg

DRUGS (1)
  1. VICKS INH [Suspect]
     Indication: SINUS CONGESTION
     Dosage: 15ML
     Dates: start: 19850101, end: 20091120

REACTIONS (2)
  - INFECTION [None]
  - NASAL DISORDER [None]
